FAERS Safety Report 5080037-2 (Version None)
Quarter: 2006Q3

REPORT INFORMATION
  Report Type: 
  Country: None (occurrence: None)
  Receive Date: 20060815
  Receipt Date: 20060727
  Transmission Date: 20061208
  Serious: Yes (Death, Life-Threatening)
  Sender: FDA-Public Use
  Company Number: 2006PK01715

PATIENT
  Age: 58 Year
  Sex: Male

DRUGS (1)
  1. ROPIVACAIN [Suspect]
     Indication: ANAESTHESIA
     Route: 053

REACTIONS (6)
  - CARDIAC ARREST [None]
  - CONVULSION [None]
  - HAEMATOMA [None]
  - IATROGENIC INJURY [None]
  - PROCEDURAL PAIN [None]
  - VENOUS INJURY [None]
